FAERS Safety Report 9562511 (Version 2)
Quarter: 2013Q4

REPORT INFORMATION
  Report Type: Spontaneous
  Country: US (occurrence: US)
  Receive Date: 20130927
  Receipt Date: 20131217
  Transmission Date: 20140711
  Serious: No
  Sender: FDA-Public Use
  Company Number: US-009507513-1309USA004464

PATIENT
  Sex: Female

DRUGS (3)
  1. REBETOL [Suspect]
     Indication: CHRONIC HEPATITIS C
     Dosage: 1200 MG DAILY
     Route: 048
     Dates: start: 20130823
  2. VICTRELIS [Suspect]
     Indication: CHRONIC HEPATITIS C
     Dosage: UNK
     Route: 048
     Dates: start: 20130920
  3. PEGASYS [Suspect]
     Indication: CHRONIC HEPATITIS C
     Dosage: 180 MICROGRAM, QW; PROCLICK; INJECTING FRIDAY EVENINGS
     Route: 058
     Dates: start: 20130823

REACTIONS (10)
  - Injection site rash [Unknown]
  - Rash pruritic [Unknown]
  - Pain in extremity [Unknown]
  - Fatigue [Unknown]
  - Sensation of heaviness [Unknown]
  - Anaemia [Unknown]
  - Hypoaesthesia [Unknown]
  - White blood cell count decreased [Unknown]
  - Fatigue [Unknown]
  - Asthenia [Unknown]
